FAERS Safety Report 9647210 (Version 1)
Quarter: 2013Q4

REPORT INFORMATION
  Report Type: Spontaneous
  Country: US (occurrence: None)
  Receive Date: 20131024
  Receipt Date: 20131024
  Transmission Date: 20140711
  Serious: Yes (Other)
  Sender: FDA-Public Use
  Company Number: None

PATIENT
  Age: 48 Year
  Sex: Male
  Weight: 89.36 kg

DRUGS (1)
  1. RISPERIDONE [Suspect]
     Indication: AFFECT LABILITY
     Dosage: 1 TABLET  AT BEDTIME  TAKEN BY MOUTH
     Route: 048
     Dates: end: 20131111

REACTIONS (1)
  - Neoplasm [None]
